FAERS Safety Report 6436706-2 (Version None)
Quarter: 2009Q4

REPORT INFORMATION
  Report Type: 
  Country: None (occurrence: None)
  Receive Date: 20091111
  Receipt Date: 20091104
  Transmission Date: 20100525
  Serious: Yes (Life-Threatening, Other)
  Sender: FDA-Public Use
  Company Number: DE-GILEAD-2009-0025242

PATIENT
  Sex: Male
  Weight: 75.8 kg

DRUGS (4)
  1. RALTEGRAVIR [Suspect]
     Indication: HIV INFECTION
     Route: 048
     Dates: start: 20090122
  2. TENOFOVIR DISOPROXIL FUMARATE [Suspect]
     Indication: HIV INFECTION
     Route: 048
     Dates: start: 20060120
  3. DARUNAVIR [Concomitant]
     Indication: HIV INFECTION
     Dates: start: 20090122
  4. RITONAVIR [Concomitant]
     Indication: HIV INFECTION
     Dates: start: 20090122

REACTIONS (1)
  - CONVULSION [None]
